FAERS Safety Report 7156526-3 (Version None)
Quarter: 2010Q4

REPORT INFORMATION
  Report Type: 
  Country: None (occurrence: None)
  Receive Date: 20101214
  Receipt Date: 20091113
  Transmission Date: 20110411
  Serious: No
  Sender: FDA-Public Use
  Company Number: US-ASTRAZENECA-2009SE26413

PATIENT
  Age: 22135 Day
  Sex: Male
  Weight: 117.9 kg

DRUGS (2)
  1. CRESTOR [Suspect]
     Route: 048
     Dates: start: 20091112
  2. HUMALOG [Concomitant]
     Indication: DIABETES MELLITUS

REACTIONS (1)
  - HYPERHIDROSIS [None]
